FAERS Safety Report 17398595 (Version 2)
Quarter: 2020Q1

REPORT INFORMATION
  Report Type: Report from Study
  Country: US (occurrence: US)
  Receive Date: 20200210
  Receipt Date: 20200325
  Transmission Date: 20200409
  Serious: No
  Sender: FDA-Public Use
  Company Number: NVSC2020US034762

PATIENT
  Sex: Male

DRUGS (1)
  1. COSENTYX [Suspect]
     Active Substance: SECUKINUMAB
     Indication: PSORIATIC ARTHROPATHY
     Dosage: UNK
     Route: 065

REACTIONS (8)
  - Splenomegaly [Unknown]
  - Abdominal pain [Unknown]
  - Dry skin [Unknown]
  - Hepatic steatosis [Unknown]
  - Vasculitis [Unknown]
  - Skin discolouration [Unknown]
  - Skin fissures [Unknown]
  - Arthralgia [Unknown]
